FAERS Safety Report 22947720 (Version 2)
Quarter: 2023Q4

REPORT INFORMATION
  Report Type: Spontaneous
  Country: DE (occurrence: DE)
  Receive Date: 20230915
  Receipt Date: 20231031
  Transmission Date: 20240110
  Serious: Yes (Other)
  Sender: FDA-Public Use
  Company Number: DE-STADA-285349

PATIENT
  Age: 21 Year
  Sex: Female

DRUGS (10)
  1. EVEROLIMUS [Suspect]
     Active Substance: EVEROLIMUS
     Indication: Endometrial hyperplasia
     Dosage: 10 MILLIGRAM, ONCE A DAY
     Route: 065
     Dates: end: 201806
  2. EVEROLIMUS [Suspect]
     Active Substance: EVEROLIMUS
     Indication: Endometrial cancer
  3. LETROZOLE [Suspect]
     Active Substance: LETROZOLE
     Indication: Endometrial hyperplasia
     Dosage: 2.5 MILLIGRAM, ONCE A DAY
     Route: 065
     Dates: end: 201806
  4. LETROZOLE [Suspect]
     Active Substance: LETROZOLE
     Indication: Endometrial cancer
  5. METFORMIN [Suspect]
     Active Substance: METFORMIN HYDROCHLORIDE
     Indication: Endometrial hyperplasia
     Dosage: 500 MILLIGRAM, TWO TIMES A DAY
     Route: 065
     Dates: end: 201806
  6. METFORMIN [Suspect]
     Active Substance: METFORMIN HYDROCHLORIDE
     Indication: Endometrial cancer
  7. GOSERELIN [Suspect]
     Active Substance: GOSERELIN
     Indication: Endometrial hyperplasia
     Dosage: 3.6 MILLIGRAM, ONCE A MONTH
     Route: 065
     Dates: end: 201806
  8. GOSERELIN [Suspect]
     Active Substance: GOSERELIN
     Indication: Endometrial cancer
  9. MEDROXYPROGESTERONE ACETATE [Concomitant]
     Active Substance: MEDROXYPROGESTERONE ACETATE
     Indication: Endometrial cancer
     Dosage: 250 MILLIGRAM
     Route: 065
  10. MEDROXYPROGESTERONE ACETATE [Concomitant]
     Active Substance: MEDROXYPROGESTERONE ACETATE
     Indication: Endometrial hyperplasia
     Dosage: 500 MILLIGRAM
     Route: 065

REACTIONS (3)
  - Alopecia [Unknown]
  - Hot flush [Unknown]
  - Off label use [Unknown]
